FAERS Safety Report 10680104 (Version 3)
Quarter: 2015Q1

REPORT INFORMATION
  Report Type: Spontaneous
  Country: US (occurrence: US)
  Receive Date: 20141229
  Receipt Date: 20150120
  Transmission Date: 20150720
  Serious: Yes (Other)
  Sender: FDA-Public Use
  Company Number: US-PFIZER INC-2014358912

PATIENT
  Age: 74 Year
  Sex: Female
  Weight: 82 kg

DRUGS (19)
  1. TYLENOL [Concomitant]
     Active Substance: ACETAMINOPHEN
     Dosage: 325 MG 1 TABLET AS NEEDED
     Route: 048
  2. MOTRIN IB [Concomitant]
     Active Substance: IBUPROFEN
     Dosage: 200 MG, 1 TABLET AS NEEDED
     Route: 048
  3. WARFARIN SODIUM. [Concomitant]
     Active Substance: WARFARIN SODIUM
     Dosage: 5 (NO UNITS) 1 TABLET ONCE A DAY
     Route: 048
  4. AMLODIPINE BESYLATE. [Concomitant]
     Active Substance: AMLODIPINE BESYLATE
     Dosage: 5 MG, 1 TABLET ONCE A DAY
     Route: 048
  5. BUPROPION HCL [Concomitant]
     Active Substance: BUPROPION HYDROCHLORIDE
     Dosage: 150 MG, 1 TABLET TWICE A DAY
     Route: 048
  6. PRISTIQ EXTENDED RELEASE [Suspect]
     Active Substance: DESVENLAFAXINE SUCCINATE
     Dosage: 50 MG, 1X/DAY
     Route: 048
  7. HYDROCODONE/ACETAMINOPHEN [Concomitant]
     Active Substance: ACETAMINOPHEN\HYDROCODONE
     Dosage: 5/325 MG 2 TABLET ONCE A DAY AT BEDTIME
     Route: 048
  8. BENAZEPRIL HCL [Concomitant]
     Active Substance: BENAZEPRIL HYDROCHLORIDE
     Dosage: 20 MG ONE TABLET DAILY
     Route: 048
  9. CARVEDILOL. [Concomitant]
     Active Substance: CARVEDILOL
     Dosage: 12.5 MG, 1 TABLET WITH FOOD TWICE A DAY
     Route: 048
  10. INDOMETHACIN. [Concomitant]
     Active Substance: INDOMETHACIN
     Dosage: 25 MG, 1 CAPSULE WITH FOOD AS NEEDED
     Route: 048
  11. CLONAZEPAM. [Concomitant]
     Active Substance: CLONAZEPAM
     Dosage: 1 MG, 1 TABLET ONCE A DAY
     Route: 048
  12. SPIRONOLACTONE. [Concomitant]
     Active Substance: SPIRONOLACTONE
     Dosage: 25 MG, 1 TABLET ONCE A DAY
     Route: 048
  13. SIMVASTATIN. [Concomitant]
     Active Substance: SIMVASTATIN
     Dosage: 40 MG, 1 TABLET ONCE A DAY AT BEDTIME
     Route: 048
  14. CENTRUM SILVER [Concomitant]
     Active Substance: VITAMINS
     Dosage: AS DIRECTED
     Route: 048
  15. METFORMIN HCL [Concomitant]
     Active Substance: METFORMIN HYDROCHLORIDE
     Dosage: 500 MG 1 TABLET TWICE A DAY
     Route: 048
  16. BENADRYL [Concomitant]
     Active Substance: DIPHENHYDRAMINE HYDROCHLORIDE
     Dosage: 25 MG, 1 CAPSULE AS NEEDED
     Route: 048
  17. ORPHENADRINE CITRATE. [Concomitant]
     Active Substance: ORPHENADRINE CITRATE
     Dosage: 100 MG, 1 TABLET AS NEEDED
     Route: 048
  18. KLOR-CON [Concomitant]
     Active Substance: POTASSIUM CHLORIDE
     Dosage: 10 MEQ, 1 TABLET ONCE A DAY
     Route: 048
  19. LYRICA [Concomitant]
     Active Substance: PREGABALIN
     Indication: NEURALGIA
     Dosage: 200 MG, EVERY 8 HOURS
     Route: 048

REACTIONS (5)
  - Hand fracture [Unknown]
  - Wrist fracture [Unknown]
  - Malaise [Not Recovered/Not Resolved]
  - Weight decreased [Unknown]
  - Road traffic accident [Unknown]

NARRATIVE: CASE EVENT DATE: 20141206
